FAERS Safety Report 15211601 (Version 1)
Quarter: 2018Q3

REPORT INFORMATION
  Report Type: Spontaneous
  Country: US (occurrence: US)
  Receive Date: 20180702
  Receipt Date: 20180702
  Transmission Date: 20181010
  Serious: Yes (Life-Threatening, Hospitalization, Disabling, Other)
  Sender: FDA-Public Use
  Company Number: None

PATIENT
  Age: 7 Year
  Sex: Male
  Weight: 28.26 kg

DRUGS (4)
  1. FLUOXETINE [Concomitant]
     Active Substance: FLUOXETINE HYDROCHLORIDE
  2. SERTRALINE 20 MG/ML CONCENTRATE [Suspect]
     Active Substance: SERTRALINE HYDROCHLORIDE
     Indication: ANXIETY
     Dosage: QUANTITY:375 MG;OTHER ROUTE:G?BUTTON?
     Dates: start: 20160419, end: 20160516
  3. SYMBICORT [Concomitant]
     Active Substance: BUDESONIDE\FORMOTEROL FUMARATE DIHYDRATE
  4. SERTRALINE 20 MG/ML CONCENTRATE [Suspect]
     Active Substance: SERTRALINE HYDROCHLORIDE
     Indication: DEPRESSION
     Dosage: QUANTITY:375 MG;OTHER ROUTE:G?BUTTON?
     Dates: start: 20160419, end: 20160516

REACTIONS (9)
  - Accidental overdose [None]
  - Drug dispensing error [None]
  - Insomnia [None]
  - Dysphemia [None]
  - Serotonin syndrome [None]
  - Electrocardiogram QT prolonged [None]
  - Intentional self-injury [None]
  - Crying [None]
  - Trichotillomania [None]

NARRATIVE: CASE EVENT DATE: 20160419
